FAERS Safety Report 9585882 (Version 1)
Quarter: 2013Q3

REPORT INFORMATION
  Report Type: Spontaneous
  Country: IN (occurrence: None)
  Receive Date: 20130926
  Receipt Date: 20130926
  Transmission Date: 20140515
  Serious: Yes (Other)
  Sender: FDA-Public Use
  Company Number: 2012-01220

PATIENT
  Age: 3 Year
  Sex: Male
  Weight: 12 kg

DRUGS (3)
  1. VALPROIC ACID (UNKNOWN) [Suspect]
     Indication: GRAND MAL CONVULSION
     Dosage: 7.5 MG (2.5 MG, 3 IN 1 D), UNKNOWN
  2. LEVETIRACETAM (UNKNOWN) [Concomitant]
  3. LORAZEPAM (UNKNOWN) [Concomitant]

REACTIONS (3)
  - Hyperammonaemia [None]
  - Hyperammonaemic encephalopathy [None]
  - Convulsion [None]
